FAERS Safety Report 12752537 (Version 1)
Quarter: 2016Q3

REPORT INFORMATION
  Report Type: Spontaneous
  Country: US (occurrence: US)
  Receive Date: 20160916
  Receipt Date: 20160916
  Transmission Date: 20161109
  Serious: Yes (Other)
  Sender: FDA-Public Use
  Company Number: None

PATIENT
  Age: 48 Year
  Sex: Male
  Weight: 106 kg

DRUGS (1)
  1. BACTRIM [Suspect]
     Active Substance: SULFAMETHOXAZOLE\TRIMETHOPRIM
     Indication: LIMB CRUSHING INJURY
     Route: 048
     Dates: start: 20160818, end: 20160820

REACTIONS (1)
  - Rash maculo-papular [None]

NARRATIVE: CASE EVENT DATE: 20160820
